FAERS Safety Report 19905366 (Version 1)
Quarter: 2021Q4

REPORT INFORMATION
  Report Type: Spontaneous
  Country: ES (occurrence: ES)
  Receive Date: 20211001
  Receipt Date: 20211001
  Transmission Date: 20220303
  Serious: Yes (Hospitalization, Other)
  Sender: FDA-Public Use
  Company Number: ES-AMGEN-ESPSP2021078528

PATIENT
  Age: 12 Year
  Sex: Male

DRUGS (5)
  1. ADALIMUMAB [Suspect]
     Active Substance: ADALIMUMAB
     Indication: Crohn^s disease
     Dosage: 80 MILLIGRAM, BIWEEKLY (80 MILLIGRAM, Q2WK)
     Route: 065
  2. ADALIMUMAB [Suspect]
     Active Substance: ADALIMUMAB
     Dosage: 160 MILLIGRAM, Q2W
     Route: 065
  3. ADALIMUMAB [Suspect]
     Active Substance: ADALIMUMAB
     Dosage: 40 MILLIGRAM, Q2W
     Route: 065
  4. METRONIDAZOLE [Concomitant]
     Active Substance: METRONIDAZOLE
     Dosage: UNK
  5. AZATHIOPRINE [Concomitant]
     Active Substance: AZATHIOPRINE
     Dosage: UNK

REACTIONS (3)
  - Erythema nodosum [Recovered/Resolved]
  - Pyrexia [Recovered/Resolved]
  - Renal failure [Recovered/Resolved]
